FAERS Safety Report 13448999 (Version 1)
Quarter: 2017Q2

REPORT INFORMATION
  Report Type: Spontaneous
  Country: US (occurrence: US)
  Receive Date: 20170417
  Receipt Date: 20170417
  Transmission Date: 20170830
  Serious: No
  Sender: FDA-Public Use
  Company Number: US-BAYER-2017-072967

PATIENT
  Sex: Female

DRUGS (1)
  1. CLIMARA PRO [Suspect]
     Active Substance: ESTRADIOL\LEVONORGESTREL
     Indication: PREMATURE MENOPAUSE
     Dosage: UNK
     Route: 062
     Dates: start: 20170327, end: 20170329

REACTIONS (2)
  - Off label use [None]
  - Product adhesion issue [None]

NARRATIVE: CASE EVENT DATE: 20170329
